FAERS Safety Report 14035961 (Version 1)
Quarter: 2017Q4

REPORT INFORMATION
  Report Type: Spontaneous
  Country: US (occurrence: US)
  Receive Date: 20171003
  Receipt Date: 20171003
  Transmission Date: 20180321
  Serious: No
  Sender: FDA-Public Use
  Company Number: US-AMGEN-USASP2017124745

PATIENT
  Sex: Female

DRUGS (2)
  1. IBRANCE [Suspect]
     Active Substance: PALBOCICLIB
     Indication: BREAST CANCER
     Dosage: 125 MG, DAILY 3 WEEKS ON, 1 WEEK OFF
     Route: 048
     Dates: start: 2015
  2. XGEVA [Suspect]
     Active Substance: DENOSUMAB
     Indication: PRODUCT USED FOR UNKNOWN INDICATION
     Route: 065

REACTIONS (9)
  - White blood cell count decreased [Unknown]
  - Skin discolouration [Unknown]
  - Alopecia [Unknown]
  - Nausea [Unknown]
  - Glossodynia [Unknown]
  - Pain in jaw [Unknown]
  - Pruritus [Unknown]
  - Fatigue [Unknown]
  - Cough [Unknown]
